FAERS Safety Report 15111731 (Version 3)
Quarter: 2018Q3

REPORT INFORMATION
  Report Type: Spontaneous
  Country: US (occurrence: US)
  Receive Date: 20180705
  Receipt Date: 20180713
  Transmission Date: 20181010
  Serious: Yes (Other)
  Sender: FDA-Public Use
  Company Number: US-PFIZER INC-2017518331

PATIENT
  Age: 61 Year
  Sex: Female
  Weight: 72.57 kg

DRUGS (17)
  1. HUMIRA [Suspect]
     Active Substance: ADALIMUMAB
     Dosage: UNK
     Dates: start: 201801, end: 201803
  2. PREDNISONE. [Concomitant]
     Active Substance: PREDNISONE
     Dosage: 5 MG, DAILY
     Route: 048
     Dates: start: 201704
  3. XELJANZ XR [Suspect]
     Active Substance: TOFACITINIB CITRATE
     Dosage: 11 MG, 1X/DAY
     Route: 048
     Dates: start: 20171228
  4. HUMIRA [Suspect]
     Active Substance: ADALIMUMAB
     Indication: RHEUMATOID ARTHRITIS
     Dosage: 40 MG/0.8 ML, EVERY OTHER WEEK, CYCLIC
     Route: 058
     Dates: start: 20180109
  5. MTX [Concomitant]
     Active Substance: METHOTREXATE SODIUM
     Dosage: 15 MG, QWK
     Dates: start: 201712
  6. ENBREL [Suspect]
     Active Substance: ETANERCEPT
     Indication: PAIN
     Dosage: 50 MG, WEEKLY [ QWK]
     Route: 065
     Dates: start: 20171201, end: 20171228
  7. NAPROXEN. [Concomitant]
     Active Substance: NAPROXEN
     Indication: NODULE
     Dosage: UNK UNK, AS NEEDED
     Route: 065
  8. ENBREL [Suspect]
     Active Substance: ETANERCEPT
     Dosage: UNK
     Route: 065
  9. NAPROXEN. [Concomitant]
     Active Substance: NAPROXEN
     Indication: JOINT SWELLING
  10. FOLIC ACID. [Concomitant]
     Active Substance: FOLIC ACID
     Dosage: 1 MG, DAILY
     Route: 048
     Dates: start: 20171201
  11. XELJANZ XR [Suspect]
     Active Substance: TOFACITINIB CITRATE
     Dosage: UNK
     Route: 065
  12. XELJANZ XR [Suspect]
     Active Substance: TOFACITINIB CITRATE
     Dosage: 11 MG, 1X/DAY
     Route: 048
  13. SULFONAMIDE [Suspect]
     Active Substance: UNSPECIFIED INGREDIENT
     Dosage: UNK
     Route: 065
  14. MTX [Concomitant]
     Active Substance: METHOTREXATE SODIUM
     Indication: RHEUMATOID ARTHRITIS
     Dosage: 2.5 MG, WEEKLY
     Dates: start: 201704, end: 2017
  15. PREDNISONE. [Concomitant]
     Active Substance: PREDNISONE
     Indication: RHEUMATOID ARTHRITIS
     Dosage: 10 MG, DAILY
  16. TYLENOL ARTHRITIS PAIN [Concomitant]
     Active Substance: ACETAMINOPHEN
     Dosage: 650 MG, AS NEEDED (TAKE 2 TABLET BY ORAL ROUTE EVERY 4 HOURS AS NEEDED)
     Dates: start: 20171201
  17. ENBREL [Suspect]
     Active Substance: ETANERCEPT
     Indication: RHEUMATOID ARTHRITIS
     Dosage: 50 MG, WEEKLY [QWK]
     Route: 058
     Dates: start: 20171108, end: 201711

REACTIONS (34)
  - Erythema [Recovering/Resolving]
  - Ocular hyperaemia [Unknown]
  - Injection site pruritus [Unknown]
  - Gait disturbance [Unknown]
  - Dyspnoea [Unknown]
  - Nausea [Unknown]
  - Injection site swelling [Unknown]
  - Joint swelling [Unknown]
  - Drug hypersensitivity [Unknown]
  - Urticaria [Unknown]
  - Conjunctivitis [Unknown]
  - Pain [Unknown]
  - Pruritus [Recovering/Resolving]
  - Injection site erythema [Unknown]
  - Myalgia [Unknown]
  - Lacrimation increased [Unknown]
  - Eyelid irritation [Unknown]
  - Rheumatoid arthritis [Unknown]
  - Nodule [Not Recovered/Not Resolved]
  - Scratch [Unknown]
  - Injection site bruising [Unknown]
  - Lymphadenopathy [Unknown]
  - Mobility decreased [Unknown]
  - Hypoaesthesia [Unknown]
  - Paraesthesia [Unknown]
  - Condition aggravated [Unknown]
  - Drug effect decreased [Unknown]
  - Vomiting [Unknown]
  - Injection site urticaria [Unknown]
  - Skin lesion [Unknown]
  - Swelling face [Unknown]
  - Drug ineffective [Unknown]
  - Arthralgia [Unknown]
  - Swelling [Recovering/Resolving]

NARRATIVE: CASE EVENT DATE: 2017
